FAERS Safety Report 9617297 (Version 1)
Quarter: 2013Q4

REPORT INFORMATION
  Report Type: Spontaneous
  Country: SE (occurrence: SE)
  Receive Date: 20131011
  Receipt Date: 20131011
  Transmission Date: 20140711
  Serious: Yes (Other)
  Sender: FDA-Public Use
  Company Number: SE-ASTRAZENECA-2013SE73846

PATIENT
  Age: 69 Year
  Sex: Male

DRUGS (2)
  1. METOPROLOL ORION [Suspect]
     Route: 048
     Dates: start: 20130325, end: 20130325
  2. ESOMEPRAZOL [Concomitant]

REACTIONS (4)
  - Hypertension [Recovered/Resolved]
  - Tremor [Recovered/Resolved]
  - Palpitations [Recovered/Resolved]
  - Sleep disorder [Recovered/Resolved]
